FAERS Safety Report 4898873-1 (Version None)
Quarter: 2006Q1

REPORT INFORMATION
  Report Type: 
  Country: None (occurrence: None)
  Receive Date: 20060202
  Receipt Date: 20060118
  Transmission Date: 20060701
  Serious: Yes (Life-Threatening, Hospitalization)
  Sender: FDA-Public Use
  Company Number: SEWYE310218JAN06

PATIENT
  Sex: Female

DRUGS (2)
  1. ENBREL [Suspect]
     Indication: PSORIATIC ARTHROPATHY
     Route: 058
     Dates: start: 20020101, end: 20060106
  2. SOMAC [Concomitant]
     Route: 048
     Dates: start: 20050801

REACTIONS (11)
  - ADENOCARCINOMA [None]
  - ATELECTASIS [None]
  - BLOOD GLUCOSE INCREASED [None]
  - BLOOD POTASSIUM DECREASED [None]
  - GASTRIC CANCER [None]
  - HAEMOGLOBIN DECREASED [None]
  - METASTASES TO PANCREAS [None]
  - METASTASES TO SPLEEN [None]
  - METASTASIS [None]
  - ODYNOPHAGIA [None]
  - PLATELET COUNT INCREASED [None]
